FAERS Safety Report 18092214 (Version 1)
Quarter: 2020Q3

REPORT INFORMATION
  Report Type: Spontaneous
  Country: US (occurrence: US)
  Receive Date: 20200730
  Receipt Date: 20200730
  Transmission Date: 20201103
  Serious: No
  Sender: FDA-Public Use
  Company Number: None

PATIENT
  Age: 28 Year
  Sex: Female

DRUGS (1)
  1. ELURYNG [Suspect]
     Active Substance: ETHINYL ESTRADIOL\ETONOGESTREL

REACTIONS (9)
  - Abdominal discomfort [None]
  - Headache [None]
  - Fatigue [None]
  - Anxiety [None]
  - Vulvovaginal discomfort [None]
  - Abdominal distension [None]
  - Product substitution issue [None]
  - Nausea [None]
  - Breast swelling [None]
